FAERS Safety Report 23778705 (Version 1)
Quarter: 2024Q2

REPORT INFORMATION
  Report Type: Spontaneous
  Country: US (occurrence: None)
  Receive Date: 20240423
  Receipt Date: 20240423
  Transmission Date: 20240716
  Serious: Yes (Hospitalization)
  Sender: FDA-Public Use
  Company Number: None

PATIENT
  Age: 68 Year
  Sex: Male
  Weight: 116 kg

DRUGS (1)
  1. RIVAROXABAN [Suspect]
     Active Substance: RIVAROXABAN
     Dosage: FREQUENCY : DAILY;?
     Route: 048
     Dates: start: 20220215, end: 20230319

REACTIONS (4)
  - Gastrointestinal haemorrhage [None]
  - Gastric antral vascular ectasia [None]
  - Varices oesophageal [None]
  - Anaemia [None]

NARRATIVE: CASE EVENT DATE: 20230316
